FAERS Safety Report 5604751-2 (Version None)
Quarter: 2008Q1

REPORT INFORMATION
  Report Type: 
  Country: None (occurrence: None)
  Receive Date: 20080128
  Receipt Date: 20080123
  Transmission Date: 20080703
  Serious: Yes (Hospitalization)
  Sender: FDA-Public Use
  Company Number: PHBS2007JP20608

PATIENT
  Age: 80 Year
  Sex: Female

DRUGS (5)
  1. COMTAN [Suspect]
     Indication: PARKINSON'S DISEASE
     Dosage: 300 MG/D
     Route: 048
     Dates: start: 20070801, end: 20070921
  2. COMTAN [Suspect]
     Dosage: 600 MG/D
     Route: 048
     Dates: start: 20070922, end: 20071011
  3. COMTAN [Suspect]
     Dosage: 100 MG, TID
     Route: 048
     Dates: start: 20071012
  4. PRAMIPEXOLE DIHYDROCHLORIDE [Concomitant]
     Indication: PARKINSON'S DISEASE
     Dosage: 1.5 MG/D
     Route: 048
  5. CARBIDOPA AND LEVODOPA [Concomitant]
     Indication: PARKINSON'S DISEASE
     Dosage: 600 MG/D
     Route: 048

REACTIONS (5)
  - DYSKINESIA [None]
  - FALL [None]
  - FEMORAL NECK FRACTURE [None]
  - HIP ARTHROPLASTY [None]
  - NAIL DISCOLOURATION [None]
